FAERS Safety Report 5291725-7 (Version None)
Quarter: 2007Q2

REPORT INFORMATION
  Report Type: 
  Country: None (occurrence: None)
  Receive Date: 20070410
  Receipt Date: 20070403
  Transmission Date: 20071010
  Serious: Yes (Disabling, Other)
  Sender: FDA-Public Use
  Company Number: GB-PFIZER INC-2007017027

PATIENT
  Age: 34 Year
  Sex: Female
  Weight: 50 kg

DRUGS (1)
  1. METHYLPREDNISOLONE ACETATE [Suspect]
     Indication: ARTHRITIS
     Route: 030
     Dates: start: 20060701, end: 20060701

REACTIONS (2)
  - INJECTION SITE NECROSIS [None]
  - SKIN ATROPHY [None]
